FAERS Safety Report 19964531 (Version 3)
Quarter: 2021Q4

REPORT INFORMATION
  Report Type: Spontaneous
  Country: CA (occurrence: CA)
  Receive Date: 20211018
  Receipt Date: 20211130
  Transmission Date: 20220303
  Serious: Yes (Life-Threatening, Hospitalization, Other)
  Sender: FDA-Public Use
  Company Number: CA-AMERICAN REGENT INC-2021002680

PATIENT
  Age: 60 Year
  Sex: Male

DRUGS (2)
  1. VENOFER [Suspect]
     Active Substance: IRON SUCROSE
     Indication: Blood iron decreased
     Dosage: UNK UNK, SINGLE
     Route: 065
     Dates: start: 20210604, end: 20210604
  2. VENOFER [Suspect]
     Active Substance: IRON SUCROSE
     Dosage: 300 MG, 1 EVERY 1 WEEKS
     Route: 042
     Dates: start: 20210618, end: 20210618

REACTIONS (5)
  - Unresponsive to stimuli [Not Recovered/Not Resolved]
  - Blood pressure inadequately controlled [Unknown]
  - Syncope [Not Recovered/Not Resolved]
  - Blood pressure decreased [Not Recovered/Not Resolved]
  - Hypotension [Unknown]

NARRATIVE: CASE EVENT DATE: 20210618
